FAERS Safety Report 24989473 (Version 1)
Quarter: 2025Q1

REPORT INFORMATION
  Report Type: Spontaneous
  Country: ES (occurrence: ES)
  Receive Date: 20250220
  Receipt Date: 20250220
  Transmission Date: 20250409
  Serious: Yes (Other)
  Sender: ROCHE
  Company Number: ES-ROCHE-10000196461

PATIENT
  Age: 73 Year
  Sex: Female

DRUGS (1)
  1. FARICIMAB [Suspect]
     Active Substance: FARICIMAB
     Indication: Retinal vein occlusion
     Route: 065

REACTIONS (3)
  - Uveitis [Unknown]
  - Blindness [Unknown]
  - Vitritis [Recovered/Resolved]
